FAERS Safety Report 8113501-X (Version None)
Quarter: 2012Q1

REPORT INFORMATION
  Report Type: 
  Country: None (occurrence: None)
  Receive Date: 20120203
  Receipt Date: 20120126
  Transmission Date: 20120608
  Serious: Yes (Hospitalization)
  Sender: FDA-Public Use
  Company Number: US-EISAI INC-E7389-01993-SPO-US

PATIENT

DRUGS (1)
  1. HALAVEN [Suspect]
     Dosage: UNKNOWN
     Route: 041
     Dates: end: 20110101

REACTIONS (4)
  - ALOPECIA [None]
  - NAUSEA [None]
  - BACTERIAL INFECTION [None]
  - FATIGUE [None]
